FAERS Safety Report 4778687-3 (Version None)
Quarter: 2005Q3

REPORT INFORMATION
  Report Type: 
  Country: None (occurrence: None)
  Receive Date: 20050923
  Receipt Date: 20050907
  Transmission Date: 20060218
  Serious: Yes (Other)
  Sender: FDA-Public Use
  Company Number: DSA_27085_2005

PATIENT
  Age: 95 Year
  Sex: Male

DRUGS (6)
  1. ORFIDAL [Suspect]
     Indication: INSOMNIA
     Dosage: 1  MG QD PO
     Route: 048
     Dates: start: 20050708, end: 20050708
  2. PARACETAMOL [Concomitant]
  3. DOPAMINE [Concomitant]
  4. SEGURIL [Concomitant]
  5. PHYTOMENADIONE [Concomitant]
  6. VENTOLIN [Concomitant]

REACTIONS (1)
  - STUPOR [None]
